FAERS Safety Report 13867927 (Version 1)
Quarter: 2017Q3

REPORT INFORMATION
  Report Type: Spontaneous
  Country: DE (occurrence: DE)
  Receive Date: 20170814
  Receipt Date: 20170814
  Transmission Date: 20171127
  Serious: Yes (Hospitalization)
  Sender: FDA-Public Use
  Company Number: DE-TEVA-795831GER

PATIENT
  Age: 75 Year
  Sex: Female

DRUGS (4)
  1. METOPROLOL-RATIOPHARM [Suspect]
     Active Substance: METOPROLOL
     Dosage: METOPROLOL-RATIOPHARM NK 50 MG, 1/2 - 1/2 - 1/2
     Dates: start: 201707
  2. METOPROLOL-RATIOPHARM [Suspect]
     Active Substance: METOPROLOL
     Dosage: 200 MILLIGRAM DAILY; METOPROLOL-RATIOPHARM 100 MG
     Dates: start: 20170701, end: 20170706
  3. ELIQUIS [Concomitant]
     Active Substance: APIXABAN
     Dates: end: 20170709
  4. METOPROLOL-RATIOPHARM [Suspect]
     Active Substance: METOPROLOL
     Dosage: METOPROLOL-RATIOPHARM NK 50 MG, 1/2 - 0 - 1/2
     Dates: start: 2010, end: 2017

REACTIONS (8)
  - Blood pressure increased [Recovered/Resolved]
  - Heart rate increased [Recovered/Resolved]
  - Pain in extremity [Not Recovered/Not Resolved]
  - Neuropathy peripheral [Not Recovered/Not Resolved]
  - Peripheral coldness [Not Recovered/Not Resolved]
  - Dysaesthesia [Not Recovered/Not Resolved]
  - Atrial fibrillation [Unknown]
  - Gait disturbance [Not Recovered/Not Resolved]
